FAERS Safety Report 4640900-0 (Version None)
Quarter: 2005Q2

REPORT INFORMATION
  Report Type: 
  Country: None (occurrence: None)
  Receive Date: 20050324
  Receipt Date: 20050119
  Transmission Date: 20051028
  Serious: Yes (Life-Threatening)
  Sender: FDA-Public Use
  Company Number: 211846

PATIENT
  Age: 69 Year
  Sex: Male
  Weight: 76.2 kg

DRUGS (1)
  1. AVASTIN [Suspect]
     Indication: RECTAL CANCER
     Dosage: 5 MG/KG, Q2W, INTRAVENOUS
     Route: 042
     Dates: start: 20040601, end: 20041004

REACTIONS (1)
  - DEEP VEIN THROMBOSIS [None]
